FAERS Safety Report 11600724 (Version 1)
Quarter: 2015Q4

REPORT INFORMATION
  Report Type: Spontaneous
  Country: US (occurrence: US)
  Receive Date: 20151006
  Receipt Date: 20151006
  Transmission Date: 20160304
  Serious: No
  Sender: FDA-Public Use
  Company Number: US-AMGEN-USASP2015001691

PATIENT
  Age: 58 Year
  Sex: Female

DRUGS (11)
  1. PROLIA [Suspect]
     Active Substance: DENOSUMAB
     Indication: OSTEOPOROSIS
     Dosage: UNK
     Route: 065
     Dates: start: 20130801
  2. METHOTREXATE (METHOTREXATE SODIUM) [Concomitant]
     Active Substance: METHOTREXATE SODIUM
     Dosage: 2.5 MG, QWK, 6 TABLETS EVERY WEDNESDAY
  3. GLUCOSAMINE CHONDROITIN            /01430901/ [Concomitant]
     Dosage: UNK UNK, QD, 6 TABLETS A DAY
  4. CENTRUM SILVER                     /02363801/ [Concomitant]
     Active Substance: MINERALS\VITAMINS
  5. PROBIOTIC                          /06395501/ [Concomitant]
     Active Substance: BIFIDOBACTERIUM ANIMALIS SUBSP. LACTIS
     Dosage: UNK UNK, QD
  6. VITAMIN D 2000 [Concomitant]
  7. CELEBREX [Concomitant]
     Active Substance: CELECOXIB
     Dosage: 200 MG, QD
  8. CITRACAL                           /00751520/ [Concomitant]
     Dosage: UNK UNK, BID
  9. COENZYME Q10 [Concomitant]
     Active Substance: UBIDECARENONE
  10. FOLIC ACID. [Concomitant]
     Active Substance: FOLIC ACID
  11. OMEGA 3 DHA                        /08184401/ [Concomitant]

REACTIONS (2)
  - Back disorder [Unknown]
  - Bone pain [Unknown]
